FAERS Safety Report 5769558-4 (Version None)
Quarter: 2008Q2

REPORT INFORMATION
  Report Type: 
  Country: None (occurrence: None)
  Receive Date: 20080612
  Receipt Date: 20080402
  Transmission Date: 20081010
  Serious: No
  Sender: FDA-Public Use
  Company Number: US-ABBOTT-08P-163-0445068-00

PATIENT
  Age: 40 Year
  Sex: Female
  Weight: 80.812 kg

DRUGS (9)
  1. HUMIRA [Suspect]
     Indication: RHEUMATOID ARTHRITIS
     Route: 058
     Dates: start: 20071205, end: 20080326
  2. PREDNISOLONE [Concomitant]
     Indication: RHEUMATOID ARTHRITIS
     Route: 048
     Dates: start: 20070201
  3. METHOTREXATE [Concomitant]
     Indication: RHEUMATOID ARTHRITIS
     Route: 048
     Dates: start: 20070219, end: 20071025
  4. METHOTREXATE [Concomitant]
     Route: 048
     Dates: start: 20071026, end: 20071126
  5. METHOTREXATE [Concomitant]
     Route: 048
     Dates: start: 20071127
  6. FOLIC ACID [Concomitant]
     Indication: VITAMIN SUPPLEMENTATION
     Route: 048
     Dates: start: 20070201, end: 20080407
  7. ESOMEPRAZOLE MAGNESIUM [Concomitant]
     Indication: PROPHYLAXIS AGAINST GASTROINTESTINAL ULCER
     Route: 048
     Dates: start: 20070101, end: 20080407
  8. NAPROXEN [Concomitant]
     Indication: OSTEOARTHRITIS
     Dates: start: 20070101, end: 20080407
  9. AMITRIPTYLINE HCL [Concomitant]
     Indication: INSOMNIA
     Dosage: 20-25 MG QHS
     Route: 048
     Dates: start: 20061201, end: 20070101

REACTIONS (5)
  - FATIGUE [None]
  - JOINT SWELLING [None]
  - OEDEMA PERIPHERAL [None]
  - PAIN IN EXTREMITY [None]
  - RHEUMATOID ARTHRITIS [None]
